FAERS Safety Report 15759985 (Version 1)
Quarter: 2018Q4

REPORT INFORMATION
  Report Type: Report from Study
  Country: US (occurrence: US)
  Receive Date: 20181226
  Receipt Date: 20181226
  Transmission Date: 20190205
  Serious: Yes (Hospitalization)
  Sender: FDA-Public Use
  Company Number: US-UCBSA-2018055176

PATIENT

DRUGS (2)
  1. LACOSAMIDE. [Suspect]
     Active Substance: LACOSAMIDE
     Indication: PRODUCT USED FOR UNKNOWN INDICATION
     Dosage: UNK
  2. FYCOMPA [Concomitant]
     Active Substance: PERAMPANEL
     Indication: PRODUCT USED FOR UNKNOWN INDICATION

REACTIONS (1)
  - Hospitalisation [Unknown]
